FAERS Safety Report 10728293 (Version 1)
Quarter: 2015Q1

REPORT INFORMATION
  Report Type: Spontaneous
  Country: HR (occurrence: HR)
  Receive Date: 20150121
  Receipt Date: 20150121
  Transmission Date: 20150721
  Serious: Yes (Death, Hospitalization)
  Sender: FDA-Public Use
  Company Number: PHHY2015HR006880

PATIENT
  Age: 83 Year
  Sex: Male

DRUGS (10)
  1. ATHYRAZOL [Concomitant]
     Indication: TOXIC NODULAR GOITRE
     Dosage: 10 MG, UNK
     Route: 065
     Dates: start: 201212
  2. MARTEFARIN [Interacting]
     Active Substance: WARFARIN
     Indication: ATRIAL FIBRILLATION
     Dosage: 3 MG, QD
     Route: 048
     Dates: start: 201105, end: 20141124
  3. BRUFEN [Interacting]
     Active Substance: IBUPROFEN
     Indication: CELLULITIS
     Dosage: UNK
     Route: 048
     Dates: start: 20141117, end: 20141124
  4. CONTROLOC [Concomitant]
     Active Substance: PANTOPRAZOLE SODIUM
     Indication: GASTRITIS PROPHYLAXIS
     Dosage: 40 MG, QD
     Route: 065
     Dates: start: 20141117, end: 20141125
  5. CARVELOL [Concomitant]
     Dosage: 3.125 MG, QD
     Dates: start: 201105
  6. CIPROFLOXACIN. [Suspect]
     Active Substance: CIPROFLOXACIN
     Indication: CELLULITIS
     Dosage: 200 MG, BID
     Route: 042
     Dates: start: 20141120, end: 20141130
  7. KLIMICIN [Interacting]
     Active Substance: CLINDAMYCIN PHOSPHATE
     Indication: CELLULITIS
     Dosage: 600 MG, BID
     Route: 042
     Dates: start: 20141120, end: 20141130
  8. ISOPTIN SR [Concomitant]
     Active Substance: VERAPAMIL HYDROCHLORIDE
     Indication: CARDIOMYOPATHY
     Dosage: 0.5 MG, QD
     Route: 048
     Dates: start: 201105
  9. CARVELOL [Concomitant]
     Indication: CARDIOMYOPATHY
     Dosage: 6.25 MG, QD
     Route: 065
     Dates: start: 201105
  10. FURSEMID [Concomitant]
     Active Substance: FUROSEMIDE
     Indication: CARDIOMYOPATHY
     Dosage: 40 MG, UNK
     Route: 065
     Dates: start: 201105

REACTIONS (7)
  - Cardiac failure [Fatal]
  - Shock haemorrhagic [Recovered/Resolved]
  - Rectal haemorrhage [Recovered/Resolved]
  - Gastritis haemorrhagic [Recovered/Resolved]
  - Gastric ulcer [Recovered/Resolved]
  - Melaena [Recovered/Resolved]
  - International normalised ratio increased [Recovered/Resolved]

NARRATIVE: CASE EVENT DATE: 2014
